FAERS Safety Report 4720650-2 (Version None)
Quarter: 2005Q3

REPORT INFORMATION
  Report Type: 
  Country: None (occurrence: None)
  Receive Date: 20050719
  Receipt Date: 20050705
  Transmission Date: 20060218
  Serious: Yes (Hospitalization)
  Sender: FDA-Public Use
  Company Number: 2005BI008205

PATIENT
  Age: 47 Year
  Sex: Female

DRUGS (1)
  1. AVONEX [Suspect]
     Indication: MULTIPLE SCLEROSIS
     Dosage: 30 UG; QW; IM
     Route: 030
     Dates: start: 20050401

REACTIONS (6)
  - DEHYDRATION [None]
  - DIABETES MELLITUS [None]
  - GASTROINTESTINAL MOTILITY DISORDER [None]
  - HYPOKALAEMIA [None]
  - NAUSEA [None]
  - VOMITING [None]
